FAERS Safety Report 5911765-1 (Version None)
Quarter: 2008Q4

REPORT INFORMATION
  Report Type: 
  Country: None (occurrence: None)
  Receive Date: 20081003
  Receipt Date: 20080927
  Transmission Date: 20090506
  Serious: Yes (Life-Threatening, Hospitalization)
  Sender: FDA-Public Use
  Company Number: 2008-184458-NL

PATIENT
  Age: 69 Year
  Sex: Female

DRUGS (23)
  1. MIRTAZAPINE [Suspect]
     Dosage: DF/7 DF ONCE
     Dates: start: 20040304, end: 20040304
  2. MIRTAZAPINE [Suspect]
     Dosage: DF/7 DF ONCE
     Dates: start: 20030101
  3. ALPRAZOLAM [Suspect]
     Dosage: DF/45 DF ONCE
     Dates: start: 20080304, end: 20080304
  4. ALPRAZOLAM [Suspect]
     Dosage: DF/45 DF ONCE
     Dates: start: 20030101
  5. SULPIRIDE [Suspect]
     Dosage: DF/100 DF ONCE
     Dates: start: 20040304, end: 20040304
  6. SULPIRIDE [Suspect]
     Dosage: DF/100 DF ONCE
     Dates: start: 20030101
  7. DOXEPIN HCL [Suspect]
     Dosage: DF/100 DF ONCE
     Dates: start: 20040304, end: 20040304
  8. DOXEPIN HCL [Suspect]
     Dosage: DF/100 DF ONCE
     Dates: start: 20030101
  9. MAPROTILINE HYDROCHLORIDE [Suspect]
     Dosage: DF/28 DF ONCE
     Dates: start: 20040304, end: 20040304
  10. MAPROTILINE HYDROCHLORIDE [Suspect]
     Dosage: DF/28 DF ONCE
     Dates: start: 20030101
  11. LORAZEPAM [Suspect]
     Dosage: DF/20 DF ONCE
     Dates: start: 20040304, end: 20040304
  12. LORAZEPAM [Suspect]
     Dosage: DF/20 DF ONCE
     Dates: start: 20030101
  13. ZOPICLONE [Suspect]
     Dosage: DF/12 DF ONCE
     Dates: start: 20040304, end: 20040304
  14. ZOPICLONE [Suspect]
     Dosage: DF/12 DF ONCE
     Dates: start: 20030101
  15. FLUOXETINE HYDROCHLORIDE [Suspect]
     Dosage: DF/12 DF ONCE
     Dates: start: 20040304, end: 20040304
  16. FLUOXETINE HYDROCHLORIDE [Suspect]
     Dosage: DF/12 DF ONCE
     Dates: start: 20030101
  17. CITALOPRAM HYDROBROMIDE [Suspect]
     Dosage: DF/8 DF ONCE
     Dates: start: 20040304, end: 20040304
  18. CITALOPRAM HYDROBROMIDE [Suspect]
     Dosage: DF/8 DF ONCE
     Dates: start: 20030101
  19. MIDAZOLAM HYDROCHLORIDE [Suspect]
     Dosage: DF/4 DF ONCE
     Dates: start: 20030101
  20. MIDAZOLAM HYDROCHLORIDE [Suspect]
     Dosage: DF/4 DF ONCE
     Dates: start: 20030101
  21. NIFEDIPINE [Concomitant]
  22. DANSHEN [Concomitant]
  23. ISOSORBIDE DINITRATE [Concomitant]

REACTIONS (11)
  - ANXIETY [None]
  - COMA [None]
  - DEPRESSION [None]
  - DRUG TOXICITY [None]
  - EXTENSOR PLANTAR RESPONSE [None]
  - HEART RATE DECREASED [None]
  - HYPOVENTILATION [None]
  - PARALYSIS FLACCID [None]
  - PULSE PRESSURE DECREASED [None]
  - RESPIRATORY RATE DECREASED [None]
  - SUICIDE ATTEMPT [None]
